FAERS Safety Report 4715456-4 (Version None)
Quarter: 2005Q3

REPORT INFORMATION
  Report Type: 
  Country: None (occurrence: None)
  Receive Date: 20050715
  Receipt Date: 20050715
  Transmission Date: 20060218
  Serious: Yes (Hospitalization)
  Sender: FDA-Public Use
  Company Number: None

PATIENT
  Age: 68 Year
  Sex: Female
  Weight: 73.0291 kg

DRUGS (2)
  1. GEMCITABINE 1000 MG /M2 D1 AND D8 [Suspect]
     Indication: NON-SMALL CELL LUNG CANCER
     Dosage: 100 MG /M2
     Dates: start: 20050422, end: 20050624
  2. CARBOPLATIN [Suspect]
     Dates: start: 20050422, end: 20050617

REACTIONS (5)
  - HAEMATOCRIT DECREASED [None]
  - HAEMATURIA [None]
  - HAEMOGLOBIN DECREASED [None]
  - NEUTROPHIL COUNT DECREASED [None]
  - PLATELET COUNT DECREASED [None]
